FAERS Safety Report 7778543-2 (Version None)
Quarter: 2011Q3

REPORT INFORMATION
  Report Type: 
  Country: None (occurrence: None)
  Receive Date: 20110922
  Receipt Date: 20110906
  Transmission Date: 20111222
  Serious: Yes (Life-Threatening)
  Sender: FDA-Public Use
  Company Number: AUR-APL-2011-04937

PATIENT
  Age: 44 Year
  Sex: Male

DRUGS (1)
  1. PAROXETINE HCL [Suspect]
     Indication: PRODUCT USED FOR UNKNOWN INDICATION

REACTIONS (12)
  - EYE PAIN [None]
  - NECK PAIN [None]
  - APPARENT LIFE THREATENING EVENT [None]
  - VISUAL IMPAIRMENT [None]
  - TREMOR [None]
  - VITREOUS FLOATERS [None]
  - DEPRESSION [None]
  - PANIC ATTACK [None]
  - WITHDRAWAL SYNDROME [None]
  - PAIN IN EXTREMITY [None]
  - GAIT DISTURBANCE [None]
  - ANXIETY [None]
